FAERS Safety Report 25325479 (Version 1)
Quarter: 2025Q2

REPORT INFORMATION
  Report Type: Spontaneous
  Country: US (occurrence: None)
  Receive Date: 20250516
  Receipt Date: 20250516
  Transmission Date: 20250716
  Serious: Yes (Other)
  Sender: FDA-CTU
  Company Number: None

PATIENT
  Age: 27 Year
  Sex: Male
  Weight: 60 kg

DRUGS (5)
  1. CEFTRIAXONE [Suspect]
     Active Substance: CEFTRIAXONE
     Indication: Urinary tract infection
     Route: 040
     Dates: start: 20250516, end: 20250516
  2. VENLAFAXINE [Concomitant]
     Active Substance: VENLAFAXINE HYDROCHLORIDE
  3. LIDOCAINE [Concomitant]
     Active Substance: LIDOCAINE
  4. MACROBID [Concomitant]
     Active Substance: NITROFURANTOIN\NITROFURANTOIN MONOHYDRATE
  5. ondansetron (given on route to the emergency dept.) [Concomitant]
     Dates: start: 20250516

REACTIONS (3)
  - Rash [None]
  - Tachycardia [None]
  - Oropharyngeal discomfort [None]

NARRATIVE: CASE EVENT DATE: 20250516
